FAERS Safety Report 6616494-7 (Version None)
Quarter: 2010Q1

REPORT INFORMATION
  Report Type: 
  Country: None (occurrence: None)
  Receive Date: 20100305
  Receipt Date: 20100223
  Transmission Date: 20100710
  Serious: Yes (Other)
  Sender: FDA-Public Use
  Company Number: US-PFIZER INC-2010008405

PATIENT
  Age: 45 Year
  Sex: Male
  Weight: 88.435 kg

DRUGS (1)
  1. LYRICA [Suspect]
     Dosage: 50 MG, UNK

REACTIONS (6)
  - ALTERED STATE OF CONSCIOUSNESS [None]
  - HALLUCINATION [None]
  - HEADACHE [None]
  - INSOMNIA [None]
  - PAIN [None]
  - PALPITATIONS [None]
